FAERS Safety Report 4354223-0 (Version None)
Quarter: 2004Q2

REPORT INFORMATION
  Report Type: 
  Country: None (occurrence: None)
  Receive Date: 20040506
  Receipt Date: 20040430
  Transmission Date: 20050107
  Serious: Yes (Other)
  Sender: FDA-Public Use
  Company Number: US-GLAXOSMITHKLINE-A0509551A

PATIENT
  Age: 46 Year
  Sex: Female

DRUGS (1)
  1. WELLBUTRIN XL [Suspect]
     Indication: DEPRESSION
     Dosage: 450MG UNKNOWN
     Route: 048

REACTIONS (3)
  - LOSS OF CONSCIOUSNESS [None]
  - TREMOR [None]
  - URINARY INCONTINENCE [None]
